FAERS Safety Report 5901055-5 (Version None)
Quarter: 2008Q3

REPORT INFORMATION
  Report Type: 
  Country: None (occurrence: None)
  Receive Date: 20080929
  Receipt Date: 20070604
  Transmission Date: 20090109
  Serious: No
  Sender: FDA-Public Use
  Company Number: US-BAYER-200711717BWH

PATIENT
  Age: 64 Year
  Sex: Female

DRUGS (7)
  1. AVELOX [Suspect]
     Indication: DRUG USE FOR UNKNOWN INDICATION
     Route: 042
  2. SODIUM CHLORIDE 0.9% [Concomitant]
  3. POTASSIUM CHLORIDE [Concomitant]
  4. VANCOMYCIN HYDROCHLORIDE [Concomitant]
  5. ATIVAN [Concomitant]
  6. TORADOL [Concomitant]
  7. DILAUDID [Concomitant]

REACTIONS (1)
  - INJECTION SITE REACTION [None]
